FAERS Safety Report 24406821 (Version 3)
Quarter: 2024Q4

REPORT INFORMATION
  Report Type: Report from Study
  Country: US (occurrence: US)
  Receive Date: 20241007
  Receipt Date: 20241219
  Transmission Date: 20250115
  Serious: Yes (Life-Threatening, Hospitalization, Other)
  Sender: Kenvue
  Company Number: US-UCBSA-2024039218

PATIENT
  Age: 25 Year
  Sex: Male

DRUGS (25)
  1. ZYRTEC [Suspect]
     Active Substance: CETIRIZINE HYDROCHLORIDE
     Indication: Multiple allergies
     Dosage: 10 MILLIGRAM, AS NEEDED (PRN) FREQUENCY: 1 FREQUENCY TIME: 1 FREQUENCY TIME UNIT: AS REQUIRED
     Route: 048
  2. FINTEPLA [Suspect]
     Active Substance: FENFLURAMINE
     Indication: Severe myoclonic epilepsy of infancy
     Dosage: 3 MILLIGRAM, 2X/DAY (BID)
     Route: 048
     Dates: start: 20200929, end: 20240711
  3. FINTEPLA [Suspect]
     Active Substance: FENFLURAMINE
     Dosage: 3.5 MILLIGRAM, 2X/DAY (BID)
     Route: 048
  4. NAYZILAM [Suspect]
     Active Substance: MIDAZOLAM
     Indication: Seizure cluster
     Dosage: 5 MILLIGRAM, AS NEEDED
     Route: 045
  5. DEPAKOTE [Suspect]
     Active Substance: DIVALPROEX SODIUM
     Indication: Product used for unknown indication
     Dosage: 1000 MILLIGRAM (375 MG IN THE AM, 250 MG AT LUNCH TIME, 375 MG IN THE EVENING)
     Route: 048
  6. DEPAKOTE [Suspect]
     Active Substance: DIVALPROEX SODIUM
     Dosage: 1000 MILLIGRAM (7.5ML IN THE MORNING AND BEDTIME. 5ML WITH LUNCH)
     Route: 048
  7. VITAMIN D3 [Concomitant]
     Active Substance: CHOLECALCIFEROL
     Indication: Product used for unknown indication
     Dosage: 2000 INTERNATIONAL UNIT, ONCE DAILY (QD)
     Route: 048
  8. ONFI [Concomitant]
     Active Substance: CLOBAZAM
     Indication: Product used for unknown indication
     Dosage: 15 MILLIGRAM, 2X/DAY (BID)
     Route: 048
  9. ONFI [Concomitant]
     Active Substance: CLOBAZAM
     Dosage: 15 MILLIGRAM, 2X/DAY (BID)
     Route: 048
  10. CATAPRES [Concomitant]
     Active Substance: CLONIDINE HYDROCHLORIDE
     Indication: Product used for unknown indication
     Dosage: 0.1 MILLIGRAM, ONCE DAILY (QD)
     Route: 048
  11. FLONASE [Concomitant]
     Active Substance: FLUTICASONE PROPIONATE
     Indication: Product used for unknown indication
     Dosage: 50 MICROGRAM, ONCE DAILY (QD)
     Route: 045
  12. ATIVAN [Concomitant]
     Active Substance: LORAZEPAM
     Indication: Seizure
     Dosage: 2 MILLIGRAM, AS NEEDED (PRN) (FOR SEIZURES MAY REPEAT X 1 IN 6 HOURS) FREQUENCY: 1 FREQUENCY TIME: 1
     Route: 048
  13. MELATONIN [Concomitant]
     Active Substance: MELATONIN
     Indication: Product used for unknown indication
     Dosage: 1 DOSAGE FORM, ONCE DAILY (QD)
     Route: 048
  14. DIACOMIT [Concomitant]
     Active Substance: STIRIPENTOL
     Indication: Product used for unknown indication
     Dosage: 1500 MILLIGRAM, ONCE DAILY (QD) (500MG EVERY AM AND 1000 MG EVERY PM)
     Route: 048
  15. LYRICA [Concomitant]
     Active Substance: PREGABALIN
     Indication: Product used for unknown indication
     Dosage: 50 MILLIGRAM, 2X/DAY (BID) (T 8 AM AND 4 PM 2.5MLS IN THE MORNING AND 3.75MLS AT BEDTIME)
     Route: 048
  16. UNASYN [Concomitant]
     Active Substance: AMPICILLIN SODIUM\SULBACTAM SODIUM
     Indication: Product used for unknown indication
     Dosage: 3 GRAM (IN 0.9 % SODIUM CHLORIDE (NS) 100 ML ADDEASE)
     Route: 065
  17. ZITHROMAX [Concomitant]
     Active Substance: AZITHROMYCIN DIHYDRATE
     Indication: Product used for unknown indication
     Dosage: 500 MILLIGRAM, ONCE DAILY (QD)500 MILLIGRAM (IN 0.9 % SODIUM CHLORIDE (NS) 250 ML ADDEASE)
     Route: 048
  18. AUGMENTIN [Concomitant]
     Active Substance: AMOXICILLIN\CLAVULANATE POTASSIUM
     Indication: Product used for unknown indication
     Dosage: UNK
     Route: 048
  19. AUGMENTIN [Concomitant]
     Active Substance: AMOXICILLIN\CLAVULANATE POTASSIUM
     Dosage: 11 MILLILITER, 2X/DAY (BID) (TAKE 11 ML (880 MG TOTAL) BY MOUTH IN THE MORNING AND 11 ML (880 MG TOT
     Route: 048
  20. MUCINEX [Concomitant]
     Active Substance: GUAIFENESIN
     Indication: Product used for unknown indication
     Dosage: UNK (QID)
     Route: 065
  21. MIDAZ [Concomitant]
     Indication: Seizure
     Dosage: 5 MILLIGRAM (MG FOR SEIZURES LASTING LESS THAN 5 MINS (MAY REPEAT IN 10 MINS IF NO RESPONSE, MAX 2 D
     Route: 065
  22. LOVENOX [Concomitant]
     Active Substance: ENOXAPARIN SODIUM
     Indication: Thrombosis prophylaxis
     Dosage: UNK
     Route: 065
  23. VITAMIN B6 [Concomitant]
     Active Substance: PYRIDOXINE HYDROCHLORIDE
     Indication: Product used for unknown indication
     Dosage: 50 MILLIGRAM, ONCE DAILY (QD)
     Route: 048
  24. CHILDRENS TYLENOL [Concomitant]
     Active Substance: ACETAMINOPHEN
     Indication: Pyrexia
     Dosage: 30.5 MILLILITER, 4X/DAY (QID) ((976 MG TOTAL))
     Route: 048
  25. ROBITUSSIN (GUAIFENESIN) [Concomitant]
     Active Substance: GUAIFENESIN
     Indication: Product used for unknown indication
     Dosage: 20 MILLILITER, 4X/DAY (QID) (TAKE 20 ML (400 MG) BY MOUTH IN THE MORNING AND 20 ML (400 MG) AT NOON
     Route: 048

REACTIONS (11)
  - Hospice care [Recovered/Resolved]
  - Decreased appetite [Recovering/Resolving]
  - Weight decreased [Recovering/Resolving]
  - Sepsis [Recovered/Resolved]
  - Acute respiratory failure [Unknown]
  - Pneumonia aspiration [Unknown]
  - Hypotension [Recovered/Resolved]
  - Thrombocytopenia [Unknown]
  - Malnutrition [Unknown]
  - General physical condition abnormal [Unknown]
  - Expired product administered [Unknown]

NARRATIVE: CASE EVENT DATE: 20240222
